FAERS Safety Report 6509467-6 (Version None)
Quarter: 2009Q4

REPORT INFORMATION
  Report Type: 
  Country: None (occurrence: None)
  Receive Date: 20091217
  Receipt Date: 20091203
  Transmission Date: 20100525
  Serious: Yes (Other)
  Sender: FDA-Public Use
  Company Number: SPV1-2009-02486

PATIENT
  Sex: Female

DRUGS (1)
  1. FOSRENOL [Suspect]

REACTIONS (1)
  - GASTRIC ADENOMA [None]
